FAERS Safety Report 4505015-0 (Version None)
Quarter: 2004Q4

REPORT INFORMATION
  Report Type: 
  Country: None (occurrence: None)
  Receive Date: 20041015
  Receipt Date: 20031017
  Transmission Date: 20050328
  Serious: Yes (Other)
  Sender: FDA-Public Use
  Company Number: 2003112984

PATIENT
  Age: 39 Year
  Sex: Female

DRUGS (2)
  1. NEURONTIN [Suspect]
     Indication: PAIN
     Dosage: ORAL
     Route: 048
     Dates: start: 20020101
  2. METHOCARBAMOL [Suspect]
     Indication: ILL-DEFINED DISORDER
     Dates: start: 20020101, end: 20020101

REACTIONS (10)
  - ABDOMINAL PAIN UPPER [None]
  - DEPRESSION [None]
  - DYSPHEMIA [None]
  - GASTROOESOPHAGEAL REFLUX DISEASE [None]
  - HYPERSOMNIA [None]
  - MENTAL DISORDER [None]
  - MUSCLE SPASMS [None]
  - SPEECH DISORDER [None]
  - SUICIDE ATTEMPT [None]
  - TIC [None]
